FAERS Safety Report 22262719 (Version 1)
Quarter: 2023Q2

REPORT INFORMATION
  Report Type: Spontaneous
  Country: JP (occurrence: JP)
  Receive Date: 20230428
  Receipt Date: 20230428
  Transmission Date: 20230722
  Serious: Yes (Other)
  Sender: FDA-Public Use
  Company Number: JP-STRIDES ARCOLAB LIMITED-2023SP006237

PATIENT
  Age: 66 Year
  Sex: Male

DRUGS (9)
  1. ETOPOSIDE [Suspect]
     Active Substance: ETOPOSIDE
     Indication: Neuroendocrine cancer of the prostate metastatic
     Dosage: 100 MILLIGRAM/SQ. METER (PER DAY) (DAYS 1-3; REPEATED EVERY 3 WEEKS)
     Route: 065
  2. ETOPOSIDE [Suspect]
     Active Substance: ETOPOSIDE
     Indication: Hormone-refractory prostate cancer
     Dosage: 80 MILLIGRAM/SQ. METER (PER DAY) (DAYS 1-3, REPEATED EVERY 4 WEEKS)
     Route: 065
  3. CISPLATIN [Suspect]
     Active Substance: CISPLATIN
     Indication: Neuroendocrine cancer of the prostate metastatic
     Dosage: 80 MILLIGRAM/SQ. METER (PER DAY) (DAY 1, REPEATED EVERY 3 WEEKS)
     Route: 065
  4. CISPLATIN [Suspect]
     Active Substance: CISPLATIN
     Indication: Hormone-refractory prostate cancer
  5. CARBOPLATIN [Suspect]
     Active Substance: CARBOPLATIN
     Indication: Neuroendocrine cancer of the prostate metastatic
     Dosage: UNK (AUC 5, DAY 1, REPEATED EVERY 4 WEEKS)
     Route: 065
  6. CARBOPLATIN [Suspect]
     Active Substance: CARBOPLATIN
     Indication: Hormone-refractory prostate cancer
  7. BICALUTAMIDE [Concomitant]
     Active Substance: BICALUTAMIDE
     Indication: Prostate cancer
     Dosage: UNK
     Route: 065
  8. DEGARELIX [Concomitant]
     Active Substance: DEGARELIX
     Indication: Prostate cancer
     Dosage: UNK
     Route: 065
  9. LEUPROLIDE ACETATE [Concomitant]
     Active Substance: LEUPROLIDE ACETATE
     Indication: Prostate cancer
     Dosage: UNK
     Route: 065

REACTIONS (2)
  - Renal impairment [Unknown]
  - Drug ineffective for unapproved indication [Unknown]
